FAERS Safety Report 6568732-7 (Version None)
Quarter: 2010Q1

REPORT INFORMATION
  Report Type: 
  Country: None (occurrence: None)
  Receive Date: 20100203
  Receipt Date: 20100129
  Transmission Date: 20100710
  Serious: Yes (Death)
  Sender: FDA-Public Use
  Company Number: PHHY2010BR05136

PATIENT
  Age: 76 Year
  Sex: Female

DRUGS (3)
  1. EXELON [Suspect]
     Indication: DEMENTIA ALZHEIMER'S TYPE
     Dosage: 18MG/10CM2, 1 PATCH DAILY
     Route: 062
  2. EXELON [Suspect]
     Dosage: 9MG/5CM2, 1 PATCH DAILY
     Route: 062
  3. EXELON [Suspect]
     Dosage: 18MG/10CM2, 1 PATCH DAILY
     Route: 062

REACTIONS (2)
  - DEATH [None]
  - INCORRECT DOSE ADMINISTERED [None]
